FAERS Safety Report 7528676-0 (Version None)
Quarter: 2011Q2

REPORT INFORMATION
  Report Type: 
  Country: None (occurrence: None)
  Receive Date: 20110607
  Receipt Date: 20110524
  Transmission Date: 20111010
  Serious: Yes (Other)
  Sender: FDA-Public Use
  Company Number: GB-JNJFOC-20090804622

PATIENT
  Age: 48 Year
  Sex: Male

DRUGS (10)
  1. BUDESONIDE [Concomitant]
  2. METHOTREXATE [Concomitant]
  3. ALL OTHER THERAPEUTIC PRODUCTS [Concomitant]
  4. ALENDRONIC ACID [Concomitant]
  5. FOLIC ACID [Concomitant]
  6. ENALAPRIL MALEATE [Concomitant]
  7. IMMUNE GLOBULIN NOS [Concomitant]
  8. INFLIXIMAB [Suspect]
     Indication: PRODUCT USED FOR UNKNOWN INDICATION
     Route: 042
  9. LOMOTIL [Concomitant]
     Dosage: ^UP TO 6MG OD^
  10. CALCICHEW D3 [Concomitant]

REACTIONS (1)
  - SQUAMOUS CELL CARCINOMA OF SKIN [None]
